FAERS Safety Report 11270520 (Version 1)
Quarter: 2015Q3

REPORT INFORMATION
  Report Type: Spontaneous
  Country: TR (occurrence: TR)
  Receive Date: 20150714
  Receipt Date: 20150714
  Transmission Date: 20151125
  Serious: Yes (Other)
  Sender: FDA-Public Use
  Company Number: TR-BAYER-2015-374169

PATIENT

DRUGS (4)
  1. CEFTAZIDIME. [Concomitant]
     Active Substance: CEFTAZIDIME
  2. AMPHOTERICIN B. [Concomitant]
     Active Substance: AMPHOTERICIN B
  3. VANCOMYCIN [Concomitant]
     Active Substance: VANCOMYCIN
  4. CIPROFLOXACIN. [Suspect]
     Active Substance: CIPROFLOXACIN
     Indication: STENOTROPHOMONAS INFECTION
     Dosage: UNK

REACTIONS (1)
  - Sepsis [Recovered/Resolved]
